FAERS Safety Report 4425472-8 (Version None)
Quarter: 2004Q3

REPORT INFORMATION
  Report Type: 
  Country: None (occurrence: None)
  Receive Date: 20040813
  Receipt Date: 20040810
  Transmission Date: 20050211
  Serious: Yes (Other)
  Sender: FDA-Public Use
  Company Number: FR-ROCHE-377196

PATIENT
  Age: 53 Year
  Sex: Male

DRUGS (1)
  1. MYCOPHENOLATE MOFETIL [Suspect]
     Route: 065
     Dates: start: 19970615

REACTIONS (2)
  - NEUTROPHIL MORPHOLOGY ABNORMAL [None]
  - POLYMORPHONUCLEAR CHROMATIN CLUMPING [None]
